FAERS Safety Report 24332457 (Version 1)
Quarter: 2024Q3

REPORT INFORMATION
  Report Type: Spontaneous
  Country: PH (occurrence: PH)
  Receive Date: 20240918
  Receipt Date: 20240918
  Transmission Date: 20241016
  Serious: Yes (Other)
  Sender: MYLAN
  Company Number: PH-MYLANLABS-2024M1083727

PATIENT
  Age: 33 Year
  Sex: Female

DRUGS (5)
  1. DOCETAXEL [Suspect]
     Active Substance: DOCETAXEL\DOCETAXEL ANHYDROUS
     Indication: Follicular dendritic cell sarcoma
     Dosage: 100 MILLIGRAM/SQ. METER {ADMINISTERED DAY 8 OF A 21?DAY CYCLE}
     Route: 065
  2. GEMCITABINE [Suspect]
     Active Substance: GEMCITABINE
     Indication: Follicular dendritic cell sarcoma
     Dosage: 900 MILLIGRAM/SQ. METER (ADMINISTERED ON DAYS 1 AND 8)
     Route: 065
  3. DOXORUBICIN [Suspect]
     Active Substance: DOXORUBICIN
     Indication: Follicular dendritic cell sarcoma
     Dosage: 60 MILLIGRAM/SQ. METER, Q21D
     Route: 065
  4. IFOSFAMIDE [Suspect]
     Active Substance: IFOSFAMIDE
     Indication: Follicular dendritic cell sarcoma
     Dosage: 3.5 GRAM PER SQUARE METRE
     Route: 065
  5. ETOPOSIDE [Suspect]
     Active Substance: ETOPOSIDE
     Indication: Follicular dendritic cell sarcoma
     Dosage: 100 MILLIGRAM/SQ. METER, QD (FOR 5 DAYS ON EVERY 21 DAYS)
     Route: 065

REACTIONS (4)
  - Drug ineffective [Unknown]
  - Leukopenia [Unknown]
  - Alopecia [Unknown]
  - Anaemia [Unknown]
